FAERS Safety Report 4641274-1 (Version None)
Quarter: 2005Q2

REPORT INFORMATION
  Report Type: 
  Country: None (occurrence: None)
  Receive Date: 20050420
  Receipt Date: 20050420
  Transmission Date: 20051028
  Serious: No
  Sender: FDA-Public Use
  Company Number: None

PATIENT
  Age: 50 Year
  Sex: Female
  Weight: 82 kg

DRUGS (2)
  1. DILAUDID [Suspect]
     Indication: ABDOMINAL HERNIA REPAIR
     Dosage: 4MG X 1   POST-OP
     Dates: start: 20040915
  2. MORPHINE [Suspect]
     Dosage: 16 MG (4MG DOSES X 4)   POST-OP
     Dates: start: 20040915

REACTIONS (4)
  - ANAPHYLACTIC REACTION [None]
  - CARDIO-RESPIRATORY ARREST [None]
  - PRURITUS GENERALISED [None]
  - WHEEZING [None]
